FAERS Safety Report 9247875 (Version 1)
Quarter: 2013Q1

REPORT INFORMATION
  Report Type: Spontaneous
  Country: US (occurrence: None)
  Receive Date: 20130305
  Receipt Date: 20130305
  Transmission Date: 20140127
  Serious: Yes (Other)
  Sender: FDA-Public Use
  Company Number: 163-21880-12092210

PATIENT
  Age: 64 Year
  Sex: Female

DRUGS (3)
  1. REVLIMID [Suspect]
     Indication: PLASMA CELL MYELOMA
     Route: 048
     Dates: start: 20120907
  2. VELCADE (BORTEZOMIB) [Suspect]
     Indication: PLASMA CELL MYELOMA
     Dates: start: 20120907
  3. DEXAMETHASONE (DEXAMETHASONE) [Suspect]
     Indication: PRODUCT USED FOR UNKNOWN INDICATION

REACTIONS (5)
  - Haemoglobin decreased [None]
  - Fatigue [None]
  - Thrombocytopenia [None]
  - Bleeding time prolonged [None]
  - Oedema peripheral [None]
